FAERS Safety Report 6366915-2 (Version None)
Quarter: 2009Q3

REPORT INFORMATION
  Report Type: 
  Country: None (occurrence: None)
  Receive Date: 20090921
  Receipt Date: 20090909
  Transmission Date: 20100115
  Serious: Yes (Other)
  Sender: FDA-Public Use
  Company Number: US-ELI_LILLY_AND_COMPANY-US200905000834

PATIENT
  Sex: Female

DRUGS (1)
  1. FORTEO [Suspect]
     Dosage: UNK, UNK
     Dates: start: 20081001, end: 20090501

REACTIONS (10)
  - ANAEMIA [None]
  - ARTHROPATHY [None]
  - ASTHENIA [None]
  - BONE DISORDER [None]
  - HAEMOGLOBIN DECREASED [None]
  - HYPOTENSION [None]
  - LOSS OF CONSCIOUSNESS [None]
  - MOBILITY DECREASED [None]
  - RENAL DISORDER [None]
  - RENAL FAILURE [None]
